FAERS Safety Report 13004608 (Version 1)
Quarter: 2016Q4

REPORT INFORMATION
  Report Type: Spontaneous
  Country: US (occurrence: US)
  Receive Date: 20161207
  Receipt Date: 20161207
  Transmission Date: 20170207
  Serious: Yes (Disabling, Other)
  Sender: FDA-Public Use
  Company Number: US-CLINIGEN GROUP PLC/ CLINIGEN HEALTHCARE LTD-E2B_00005149

PATIENT
  Sex: Male
  Weight: 63 kg

DRUGS (8)
  1. FLUCONAZOLE. [Concomitant]
     Active Substance: FLUCONAZOLE
     Route: 065
  2. GANCICLOVIR. [Concomitant]
     Active Substance: GANCICLOVIR
     Indication: CYTOMEGALOVIRUS CHORIORETINITIS
     Dosage: TOTAL DAILY DOSE: 10 MG/KG
     Route: 042
  3. RESTORIL [Concomitant]
     Active Substance: TEMAZEPAM
     Route: 065
  4. FOSCAVIR [Suspect]
     Active Substance: FOSCARNET SODIUM
     Dosage: DOSE: 5664 MG TOTAL DAILY DOSE: 5664 MG
     Route: 042
     Dates: start: 19960311
  5. DAPSONE. [Concomitant]
     Active Substance: DAPSONE
     Route: 065
  6. G-CSF [Concomitant]
     Active Substance: GRANULOCYTE COLONY-STIMULATING FACTOR NOS
     Route: 065
  7. FOSCAVIR [Suspect]
     Active Substance: FOSCARNET SODIUM
     Indication: CYTOMEGALOVIRUS CHORIORETINITIS
     Dosage: DOSE: 8280 MG TOTAL DAILY DOSE: 8280 MG
     Route: 042
  8. BENADRYL [Concomitant]
     Active Substance: DIPHENHYDRAMINE HYDROCHLORIDE
     Route: 065

REACTIONS (4)
  - Tinnitus [Recovering/Resolving]
  - Hypocalcaemia [Unknown]
  - Hypokalaemia [Unknown]
  - Hypoacusis [Unknown]
